FAERS Safety Report 4675385-1 (Version None)
Quarter: 2005Q2

REPORT INFORMATION
  Report Type: 
  Country: None (occurrence: None)
  Receive Date: 20050527
  Receipt Date: 20050214
  Transmission Date: 20051028
  Serious: Yes (Hospitalization)
  Sender: FDA-Public Use
  Company Number: US-BRISTOL-MYERS SQUIBB COMPANY-12861969

PATIENT
  Age: 68 Year
  Sex: Female

DRUGS (2)
  1. ABILIFY [Suspect]
     Indication: SCHIZOAFFECTIVE DISORDER
     Route: 048
     Dates: start: 20030106
  2. PAXIL [Concomitant]
     Dosage: 30 MG THEN REDUCED TO 25 MG

REACTIONS (2)
  - MYOCARDIAL INFARCTION [None]
  - PSYCHOTIC DISORDER [None]
